FAERS Safety Report 20610565 (Version 1)
Quarter: 2022Q1

REPORT INFORMATION
  Report Type: Spontaneous
  Country: GB (occurrence: GB)
  Receive Date: 20220318
  Receipt Date: 20220318
  Transmission Date: 20220424
  Serious: Yes (Other)
  Sender: FDA-Public Use
  Company Number: GB-AMGEN-GBRSP2022043412

PATIENT
  Sex: Male

DRUGS (2)
  1. XGEVA [Suspect]
     Active Substance: DENOSUMAB
     Indication: Renal cell carcinoma
     Dosage: UNK
     Route: 065
  2. PAZOPANIB [Concomitant]
     Active Substance: PAZOPANIB
     Indication: Renal cell carcinoma
     Dosage: UNK

REACTIONS (5)
  - Metastases to bone [Recovering/Resolving]
  - Renal cell carcinoma recurrent [Recovering/Resolving]
  - Osteonecrosis of jaw [Unknown]
  - Pathological fracture [Unknown]
  - Nerve injury [Recovered/Resolved]
